FAERS Safety Report 25630445 (Version 1)
Quarter: 2025Q3

REPORT INFORMATION
  Report Type: Spontaneous
  Country: EU (occurrence: EU)
  Receive Date: 20250801
  Receipt Date: 20250801
  Transmission Date: 20251020
  Serious: Yes (Life-Threatening, Hospitalization)
  Sender: ACCORD
  Company Number: None

PATIENT
  Age: 61 Year
  Sex: Male

DRUGS (4)
  1. BORTEZOMIB [Suspect]
     Active Substance: BORTEZOMIB
     Indication: Plasma cell myeloma
     Dates: start: 20250201, end: 20250217
  2. TOLODODEKIN ALFA [Suspect]
     Active Substance: TOLODODEKIN ALFA
     Indication: Plasma cell myeloma
     Dates: start: 20250201, end: 20250303
  3. DEXAMETHASONE [Suspect]
     Active Substance: DEXAMETHASONE
     Indication: Plasma cell myeloma
     Dates: start: 20250201, end: 20250324
  4. BORTEZOMIB [Suspect]
     Active Substance: BORTEZOMIB
     Indication: Plasma cell myeloma
     Dates: start: 20250317, end: 20250324

REACTIONS (3)
  - Campylobacter colitis [Recovered/Resolved]
  - Clostridium difficile colitis [Recovered/Resolved]
  - Hypovolaemic shock [Recovered/Resolved]

NARRATIVE: CASE EVENT DATE: 20250331
